FAERS Safety Report 5527617-5 (Version None)
Quarter: 2007Q4

REPORT INFORMATION
  Report Type: 
  Country: None (occurrence: None)
  Receive Date: 20071123
  Receipt Date: 20071119
  Transmission Date: 20080405
  Serious: Yes (Other)
  Sender: FDA-Public Use
  Company Number: 2007-04335

PATIENT
  Age: 45 Year
  Sex: Female

DRUGS (1)
  1. TRELSTAR DEPOT [Suspect]
     Indication: LEIOMYOMA
     Dosage: DOSE Q MONTH X 3, INTRAMUSCULAR
     Route: 030

REACTIONS (3)
  - ANAEMIA [None]
  - LYMPHOCYTIC INFILTRATION [None]
  - METRORRHAGIA [None]
